FAERS Safety Report 23232424 (Version 1)
Quarter: 2023Q4

REPORT INFORMATION
  Report Type: Spontaneous
  Country: CN (occurrence: CN)
  Receive Date: 20231128
  Receipt Date: 20231128
  Transmission Date: 20240109
  Serious: Yes (Life-Threatening, Hospitalization, Other)
  Sender: FDA-Public Use
  Company Number: CN-MACLEODS PHARMACEUTICALS US LTD-MAC2023044363

PATIENT

DRUGS (14)
  1. LIDOCAINE [Suspect]
     Active Substance: LIDOCAINE
     Indication: Local anaesthesia
     Dosage: UNK
     Route: 065
  2. MIDAZOLAM [Suspect]
     Active Substance: MIDAZOLAM
     Indication: Maintenance of anaesthesia
     Dosage: 0.05 MILLIGRAM/KILOGRAM
     Route: 042
  3. PROPOFOL [Suspect]
     Active Substance: PROPOFOL
     Indication: Maintenance of anaesthesia
     Dosage: 0.1 MILLIGRAM/KILOGRAM, EVERY 1 MINUTE
     Route: 042
  4. PROPOFOL [Suspect]
     Active Substance: PROPOFOL
     Dosage: 0.06 MILLIGRAM/KILOGRAM, EVERY 1 MINUTE
     Route: 042
  5. PROPOFOL [Suspect]
     Active Substance: PROPOFOL
     Dosage: 2 MILLIGRAM/KILOGRAM
     Route: 042
  6. REMIFENTANIL [Suspect]
     Active Substance: REMIFENTANIL
     Indication: Maintenance of anaesthesia
     Dosage: 0.1 MICROGRAM/KILOGRAM
     Route: 065
  7. REMIFENTANIL [Suspect]
     Active Substance: REMIFENTANIL
     Dosage: 0.2 MICROGRAM/KILOGRAM
     Route: 065
  8. ROCURONIUM BROMIDE [Suspect]
     Active Substance: ROCURONIUM BROMIDE
     Indication: Maintenance of anaesthesia
     Dosage: 0.6 MILLIGRAM/KILOGRAM
     Route: 042
  9. SEVOFLURANE [Suspect]
     Active Substance: SEVOFLURANE
     Indication: Maintenance of anaesthesia
     Dosage: UNK (1% TO 2%)
  10. SUFENTANIL [Suspect]
     Active Substance: SUFENTANIL
     Indication: Maintenance of anaesthesia
     Dosage: 0.4 MICROGRAM/KILOGRAM
     Route: 042
  11. ATROPINE [Concomitant]
     Active Substance: ATROPINE\ATROPINE SULFATE
     Indication: Product used for unknown indication
     Dosage: 0.5 MILLIGRAM
     Route: 065
  12. DEXMEDETOMIDINE [Concomitant]
     Active Substance: DEXMEDETOMIDINE
     Indication: Product used for unknown indication
     Dosage: 0.3 MICROGRAM/KILOGRAM, Q.H.
     Route: 042
  13. NEOSTIGMINE [Concomitant]
     Active Substance: NEOSTIGMINE
     Indication: Product used for unknown indication
     Dosage: 1 MILLIGRAM
     Route: 065
  14. SODIUM CHLORIDE [Concomitant]
     Active Substance: SODIUM CHLORIDE
     Indication: Product used for unknown indication
     Dosage: UNK
     Route: 042

REACTIONS (3)
  - Dyspnoea [Recovering/Resolving]
  - Airway complication of anaesthesia [Recovering/Resolving]
  - Dysphagia [Recovering/Resolving]
